FAERS Safety Report 6039686-7 (Version None)
Quarter: 2009Q1

REPORT INFORMATION
  Report Type: 
  Country: None (occurrence: None)
  Receive Date: 20090116
  Receipt Date: 20080309
  Transmission Date: 20090719
  Serious: No
  Sender: FDA-Public Use
  Company Number: US-KINGPHARMUSA00001-K200800303

PATIENT

DRUGS (2)
  1. CORGARD [Suspect]
     Indication: MITRAL VALVE PROLAPSE
     Dosage: 40 MG, QD
     Route: 048
     Dates: start: 19830101, end: 19830101
  2. CORGARD [Suspect]
     Dosage: 80 MG, QD
     Route: 048
     Dates: start: 19830101

REACTIONS (9)
  - ABDOMINAL PAIN UPPER [None]
  - BRONCHOSPASM [None]
  - CHEST DISCOMFORT [None]
  - DYSGEUSIA [None]
  - DYSPEPSIA [None]
  - DYSPNOEA [None]
  - HYPOTENSION [None]
  - OBSTRUCTIVE AIRWAYS DISORDER [None]
  - TOOTH DISCOLOURATION [None]
